FAERS Safety Report 23544326 (Version 1)
Quarter: 2024Q1

REPORT INFORMATION
  Report Type: Other
  Country: DE (occurrence: DE)
  Receive Date: 20240220
  Receipt Date: 20240220
  Transmission Date: 20240409
  Serious: Yes (Life-Threatening, Hospitalization, Other)
  Sender: FDA-Public Use
  Company Number: DE-BIOLOGICAL E. LTD-2153424

PATIENT
  Age: 76 Year
  Sex: Male

DRUGS (4)
  1. PANTOPRAZOLE SODIUM I.V. [Suspect]
     Active Substance: PANTOPRAZOLE SODIUM
     Route: 065
  2. TORSEMIDE [Interacting]
     Active Substance: TORSEMIDE
     Route: 065
  3. CANDESARTAN [Interacting]
     Active Substance: CANDESARTAN
     Route: 065
  4. METHOTREXATE [Interacting]
     Active Substance: METHOTREXATE
     Route: 065

REACTIONS (6)
  - Toxicity to various agents [Recovered/Resolved]
  - Glomerular filtration rate decreased [Recovered/Resolved]
  - Leukopenia [Recovered/Resolved]
  - Myelosuppression [Recovered/Resolved]
  - Mucosal inflammation [Recovered/Resolved]
  - Drug interaction [Recovered/Resolved]
